FAERS Safety Report 5632096-3 (Version None)
Quarter: 2008Q1

REPORT INFORMATION
  Report Type: 
  Country: None (occurrence: None)
  Receive Date: 20080220
  Receipt Date: 20080218
  Transmission Date: 20080703
  Serious: Yes (Hospitalization, Other)
  Sender: FDA-Public Use
  Company Number: B0507884A

PATIENT
  Age: 57 Year
  Sex: Male

DRUGS (10)
  1. CARVEDILOL [Suspect]
     Indication: HYPERTENSION
     Route: 048
  2. ALDOMET [Suspect]
     Indication: HYPERTENSION
     Route: 048
  3. COZAAR [Suspect]
     Indication: HYPERTENSION
     Route: 048
  4. EMCONCOR [Suspect]
     Indication: HYPERTENSION
     Route: 048
  5. FURIX [Suspect]
     Indication: HYPERTENSION
     Route: 048
  6. NORVASC [Suspect]
     Indication: HYPERTENSION
     Route: 048
  7. PHYSIOTENS [Suspect]
     Indication: HYPERTENSION
     Route: 048
  8. SELO-ZOK [Suspect]
     Indication: HYPERTENSION
     Route: 048
  9. VIVATEC [Suspect]
     Indication: HYPERTENSION
     Route: 048
  10. ZANIDIP [Suspect]
     Indication: HYPERTENSION
     Route: 048

REACTIONS (2)
  - COLITIS ULCERATIVE [None]
  - HEADACHE [None]
